FAERS Safety Report 24737425 (Version 1)
Quarter: 2024Q4

REPORT INFORMATION
  Report Type: Spontaneous
  Country: US (occurrence: None)
  Receive Date: 20241214
  Receipt Date: 20241214
  Transmission Date: 20250115
  Serious: Yes (Hospitalization)
  Sender: Public
  Company Number: None

PATIENT
  Sex: Male
  Weight: 87.4 kg

DRUGS (3)
  1. CISPLATIN [Suspect]
     Active Substance: CISPLATIN
  2. GEMCITABINE HYDROCHLORIDE [Suspect]
     Active Substance: GEMCITABINE HYDROCHLORIDE
  3. NEULASTA [Suspect]
     Active Substance: PEGFILGRASTIM

REACTIONS (3)
  - Pulmonary embolism [None]
  - Anaemia [None]
  - Palpitations [None]

NARRATIVE: CASE EVENT DATE: 20241203
